FAERS Safety Report 25021144 (Version 1)
Quarter: 2025Q1

REPORT INFORMATION
  Report Type: Spontaneous
  Country: US (occurrence: US)
  Receive Date: 20250228
  Receipt Date: 20250228
  Transmission Date: 20250409
  Serious: No
  Sender: Kenvue
  Company Number: US-KENVUE-20250110521

PATIENT
  Sex: Male

DRUGS (10)
  1. IMODIUM [Suspect]
     Active Substance: LOPERAMIDE HYDROCHLORIDE
     Indication: Diarrhoea
     Route: 065
  2. TYLENOL [Concomitant]
     Active Substance: ACETAMINOPHEN
     Indication: Pain in extremity
     Route: 065
  3. REMODULIN [Concomitant]
     Active Substance: TREPROSTINIL
     Indication: Pulmonary arterial hypertension
     Route: 041
     Dates: start: 202412
  4. REMODULIN [Concomitant]
     Active Substance: TREPROSTINIL
     Route: 041
     Dates: start: 202412
  5. REMODULIN [Concomitant]
     Active Substance: TREPROSTINIL
     Route: 041
  6. REMODULIN [Concomitant]
     Active Substance: TREPROSTINIL
     Route: 041
     Dates: start: 2024
  7. EMETROL [Concomitant]
     Active Substance: DEXTROSE\FRUCTOSE\PHOSPHORIC ACID
     Indication: Nausea
     Route: 065
  8. BIOFREEZE [Concomitant]
     Active Substance: MENTHOL
     Indication: Product used for unknown indication
     Route: 065
  9. TRAMADOL HCL [Concomitant]
     Active Substance: TRAMADOL HYDROCHLORIDE
     Indication: Pain in extremity
     Route: 065
  10. BENADRYL [Concomitant]
     Active Substance: DIPHENHYDRAMINE HYDROCHLORIDE
     Indication: Urticaria

REACTIONS (1)
  - Therapeutic product effect incomplete [Unknown]
